FAERS Safety Report 5896175-8 (Version None)
Quarter: 2008Q3

REPORT INFORMATION
  Report Type: 
  Country: None (occurrence: None)
  Receive Date: 20080924
  Receipt Date: 20071129
  Transmission Date: 20090109
  Serious: Yes (Hospitalization)
  Sender: FDA-Public Use
  Company Number: US-ASTRAZENECA-2007UW07510

PATIENT
  Age: 11472 Day
  Sex: Female
  Weight: 83.9 kg

DRUGS (96)
  1. SEROQUEL [Suspect]
     Indication: BIPOLAR DISORDER
     Dosage: 25 MG, 50 MG, 100 MG, 200 MG
     Route: 048
     Dates: start: 20010221
  2. SEROQUEL [Suspect]
     Indication: SLEEP DISORDER
     Dosage: 25 MG, 50 MG, 100 MG, 200 MG
     Route: 048
     Dates: start: 20010221
  3. ABILIFY [Concomitant]
     Dates: start: 20030424
  4. ABILIFY [Concomitant]
     Dates: start: 20050712
  5. ABILIFY [Concomitant]
     Dates: start: 20061114
  6. GEODON [Concomitant]
     Dosage: 20 + 40 MG
     Dates: start: 20030520
  7. GEODON [Concomitant]
     Dates: start: 20030701
  8. RISPERDAL [Concomitant]
     Dates: start: 20031006
  9. PAXIL [Concomitant]
     Dates: start: 20000811
  10. PAXIL [Concomitant]
     Dates: start: 20060324
  11. PAXIL [Concomitant]
     Dates: start: 20060824
  12. PAXIL [Concomitant]
     Dates: start: 20061027
  13. PAXIL [Concomitant]
     Dates: start: 20061119
  14. EFFEXOR [Concomitant]
     Dates: start: 20000825, end: 20070704
  15. EFFEXOR [Concomitant]
     Dates: start: 20001012
  16. EFFEXOR [Concomitant]
     Dates: start: 20060914
  17. EFFEXOR [Concomitant]
     Dates: start: 20061031
  18. EFFEXOR [Concomitant]
     Dates: start: 20061203
  19. EFFEXOR [Concomitant]
     Dates: start: 20070103
  20. EFFEXOR [Concomitant]
     Dates: start: 20070131
  21. EFFEXOR [Concomitant]
     Dates: start: 20070223
  22. EFFEXOR [Concomitant]
     Dates: start: 20070319
  23. EFFEXOR [Concomitant]
     Dates: start: 20070427
  24. EFFEXOR [Concomitant]
     Dates: start: 20070604
  25. EFFEXOR [Concomitant]
     Dates: start: 20070704
  26. ZOLOFT [Concomitant]
     Dates: start: 20000811
  27. ESKALITH [Concomitant]
     Dates: start: 20000825, end: 20000831
  28. ESKALITH [Concomitant]
     Dates: start: 20001012
  29. ESKALITH [Concomitant]
     Dates: start: 20001024
  30. ESKALITH [Concomitant]
     Dates: start: 20010207
  31. ESKALITH [Concomitant]
     Dates: start: 20010228
  32. ESKALITH [Concomitant]
     Dates: start: 20010411
  33. ESKALITH [Concomitant]
     Dates: start: 20010606
  34. ESKALITH [Concomitant]
     Dates: start: 20010703
  35. ESKALITH [Concomitant]
     Dates: start: 20010808
  36. DEPAKOTE [Concomitant]
     Dates: start: 20001024
  37. CARBATROL [Concomitant]
     Dates: start: 20010102
  38. CARBATROL [Concomitant]
     Dates: start: 20010905
  39. CARBATROL [Concomitant]
     Dates: start: 20011015
  40. CARBATROL [Concomitant]
     Dates: start: 20011210
  41. CARBATROL [Concomitant]
     Dates: start: 20020204
  42. CARBATROL [Concomitant]
     Dates: start: 20020314
  43. CARBATROL [Concomitant]
     Dates: start: 20020509
  44. CARBATROL [Concomitant]
     Dates: start: 20020829
  45. CARBATROL [Concomitant]
     Dates: start: 20021004
  46. CARBATROL [Concomitant]
     Dates: start: 20021209
  47. CARBATROL [Concomitant]
     Dates: start: 20030203
  48. CARBATROL [Concomitant]
     Dates: start: 20030331
  49. CARBATROL [Concomitant]
     Dates: start: 20030424
  50. CARBATROL [Concomitant]
     Dates: start: 20030701
  51. CARBATROL [Concomitant]
     Dates: start: 20030811
  52. CARBATROL [Concomitant]
     Dates: start: 20031117
  53. CARBATROL [Concomitant]
     Dates: start: 20040212
  54. CARBATROL [Concomitant]
     Dates: start: 20040602
  55. CARBATROL [Concomitant]
     Dates: start: 20040708
  56. CARBATROL [Concomitant]
     Dates: start: 20040826
  57. CARBATROL [Concomitant]
     Dates: start: 20041006
  58. CARBATROL [Concomitant]
     Dates: start: 20041104
  59. CARBATROL [Concomitant]
     Dates: start: 20041226
  60. CARBATROL [Concomitant]
     Dates: start: 20050106
  61. CARBATROL [Concomitant]
     Dates: start: 20050216
  62. CARBATROL [Concomitant]
     Dates: start: 20050603
  63. CARBATROL [Concomitant]
     Dates: start: 20050830
  64. CARBATROL [Concomitant]
     Dates: start: 20050902
  65. CARBATROL [Concomitant]
     Dates: start: 20051216
  66. CARBATROL [Concomitant]
     Dates: start: 20060126
  67. CARBATROL [Concomitant]
     Dates: start: 20060228
  68. CARBATROL [Concomitant]
     Dates: start: 20060325
  69. CARBATROL [Concomitant]
     Dates: start: 20060414
  70. CARBATROL [Concomitant]
     Dates: start: 20060417
  71. CARBATROL [Concomitant]
     Dates: start: 20060624
  72. CARBATROL [Concomitant]
     Dates: start: 20060911
  73. CARBATROL [Concomitant]
     Dates: start: 20061031
  74. CARBATROL [Concomitant]
     Dates: start: 20061219
  75. CARBATROL [Concomitant]
     Dates: start: 20070214
  76. CARBATROL [Concomitant]
     Dates: start: 20070427
  77. CARBATROL [Concomitant]
     Dates: start: 20070521
  78. CARBATROL [Concomitant]
     Dates: start: 20070715
  79. TRILEPTAL [Concomitant]
     Dates: start: 20060419
  80. TRILEPTAL [Concomitant]
     Dates: start: 20060521
  81. TRILEPTAL [Concomitant]
     Dates: start: 20060615
  82. NEURONTIN [Concomitant]
     Dates: start: 20021008
  83. LAMICTAL [Concomitant]
     Dates: start: 20020730
  84. LAMICTAL [Concomitant]
     Dates: start: 20020829
  85. LAMICTAL [Concomitant]
     Dates: start: 20020913
  86. LAMICTAL [Concomitant]
     Dates: start: 20021004
  87. TOPAMAX [Concomitant]
     Dates: start: 20010123
  88. TOPAMAX [Concomitant]
     Dates: start: 20010207
  89. TOPAMAX [Concomitant]
     Dates: start: 20010221
  90. TOPAMAX [Concomitant]
     Dates: start: 20010411
  91. TOPAMAX [Concomitant]
     Dates: start: 20020702
  92. TOPAMAX [Concomitant]
     Dates: start: 20020731, end: 20020805
  93. TOPAMAX [Concomitant]
     Dates: start: 20070214
  94. REMERON [Concomitant]
     Dates: start: 20020204
  95. WELLBUTRIN [Concomitant]
     Dates: start: 20010102
  96. DESYREL [Concomitant]
     Dates: start: 20000825, end: 20000831

REACTIONS (5)
  - BIPOLAR DISORDER [None]
  - BLOOD CHOLESTEROL INCREASED [None]
  - BLOOD TRIGLYCERIDES INCREASED [None]
  - TYPE 2 DIABETES MELLITUS [None]
  - WEIGHT INCREASED [None]
